FAERS Safety Report 9334905 (Version 2)
Quarter: 2013Q3

REPORT INFORMATION
  Report Type: Spontaneous
  Country: FR (occurrence: FR)
  Receive Date: 20130606
  Receipt Date: 20130715
  Transmission Date: 20140515
  Serious: Yes (Hospitalization)
  Sender: FDA-Public Use
  Company Number: FR-FRI-1000045688

PATIENT
  Age: 61 Year
  Sex: Male

DRUGS (10)
  1. ACAMPROSATE [Suspect]
     Indication: ALCOHOL ABUSE
     Dosage: 2 DF
     Route: 048
     Dates: start: 201301, end: 20130328
  2. LYRICA [Suspect]
     Dosage: 1 DF
     Route: 048
     Dates: start: 201210
  3. EUCREAS [Concomitant]
     Dosage: 2 DF
     Route: 048
     Dates: start: 201210
  4. LASILIX [Concomitant]
     Dosage: 1 DF
     Route: 048
  5. TRIATEC [Concomitant]
     Dosage: 2 DF
     Route: 048
  6. DETENSIEL [Concomitant]
     Dosage: 1 DF
     Route: 048
  7. NOVONORM [Concomitant]
     Dosage: 3 DF
  8. SERESTA [Concomitant]
     Dosage: 2 DF
  9. DEFANYL [Concomitant]
     Dosage: 1 DF
  10. ANAFRANIL [Concomitant]
     Dosage: 25 MG

REACTIONS (1)
  - Pemphigoid [Not Recovered/Not Resolved]
